FAERS Safety Report 7120719-1 (Version None)
Quarter: 2010Q4

REPORT INFORMATION
  Report Type: 
  Country: None (occurrence: None)
  Receive Date: 20101119
  Receipt Date: 20101119
  Transmission Date: 20110411
  Serious: No
  Sender: FDA-Public Use
  Company Number: None

PATIENT
  Age: 84 Year
  Sex: Female
  Weight: 81.6475 kg

DRUGS (2)
  1. VALSARTAN AND HYDROCHLOROTHIAZIDE [Suspect]
     Indication: HYPERTENSION
     Dosage: 160 1 AM AUG THRU SEPT
  2. VALSARTAN AND HYDROCHLOROTHIAZIDE [Suspect]
     Indication: VERTIGO
     Dosage: 160 1 AM AUG THRU SEPT

REACTIONS (3)
  - CONDITION AGGRAVATED [None]
  - PRODUCT SUBSTITUTION ISSUE [None]
  - SYSTEMIC LUPUS ERYTHEMATOSUS RASH [None]
